FAERS Safety Report 23036178 (Version 1)
Quarter: 2023Q4

REPORT INFORMATION
  Report Type: Spontaneous
  Country: DK (occurrence: DK)
  Receive Date: 20231006
  Receipt Date: 20231006
  Transmission Date: 20240109
  Serious: Yes (Other)
  Sender: FDA-Public Use
  Company Number: None

PATIENT
  Age: 47 Year
  Sex: Female

DRUGS (7)
  1. AUBAGIO [Suspect]
     Active Substance: TERIFLUNOMIDE
     Indication: Multiple sclerosis
     Dosage: 14 MG, QD
     Route: 048
     Dates: start: 20220301
  2. MIRENA [Concomitant]
     Active Substance: LEVONORGESTREL
     Indication: Contraception
     Dosage: UNK
     Dates: start: 20191007
  3. FEXOFENADINE [Concomitant]
     Active Substance: FEXOFENADINE HYDROCHLORIDE
     Indication: Food allergy
     Dosage: UNK
     Dates: start: 20171023
  4. ZADITEN [Concomitant]
     Active Substance: KETOTIFEN FUMARATE
     Indication: Conjunctivitis allergic
     Dosage: UNK
     Dates: start: 20230412
  5. PREDNISOLONE [Concomitant]
     Active Substance: PREDNISOLONE
     Indication: Food allergy
     Dosage: UNK
     Dates: start: 20171023
  6. EPIPEN [Concomitant]
     Active Substance: EPINEPHRINE
     Indication: Food allergy
     Dosage: UNK
     Dates: start: 20170926
  7. NASONEX [Concomitant]
     Active Substance: MOMETASONE FUROATE
     Indication: Rhinitis allergic
     Dosage: UNK
     Dates: start: 20230412

REACTIONS (2)
  - Thyroiditis [Unknown]
  - Myxoedema [Not Recovered/Not Resolved]

NARRATIVE: CASE EVENT DATE: 20230511
